FAERS Safety Report 5639242-6 (Version None)
Quarter: 2008Q1

REPORT INFORMATION
  Report Type: 
  Country: None (occurrence: None)
  Receive Date: 20080226
  Receipt Date: 20080215
  Transmission Date: 20080703
  Serious: Yes (Hospitalization)
  Sender: FDA-Public Use
  Company Number: US-ELI_LILLY_AND_COMPANY-US200802003850

PATIENT
  Sex: Male
  Weight: 120.18 kg

DRUGS (5)
  1. BYETTA [Suspect]
     Dosage: 5 UG, 2/D
     Route: 058
     Dates: start: 20061101, end: 20071201
  2. BYETTA [Suspect]
     Dosage: 10 UG, 2/D
     Route: 058
     Dates: start: 20071201
  3. METFORMIN HCL [Concomitant]
     Dosage: 1000 MG, 2/D
     Route: 065
     Dates: start: 20040101
  4. ALEVE [Concomitant]
     Indication: PAIN IN EXTREMITY
     Dosage: UNK, AS NEEDED
     Route: 065
     Dates: end: 20071101
  5. ALEVE [Concomitant]
     Dosage: UNK, DAILY (1/D)
     Route: 065
     Dates: start: 20071101

REACTIONS (6)
  - BLOOD GLUCOSE INCREASED [None]
  - GAIT DISTURBANCE [None]
  - KNEE ARTHROPLASTY [None]
  - MYALGIA [None]
  - PAIN IN EXTREMITY [None]
  - STRESS [None]
